FAERS Safety Report 12128251 (Version 1)
Quarter: 2016Q1

REPORT INFORMATION
  Report Type: Report from Study
  Country: CO (occurrence: CO)
  Receive Date: 20160229
  Receipt Date: 20160229
  Transmission Date: 20160526
  Serious: Yes (Death, Life-Threatening, Hospitalization)
  Sender: FDA-Public Use
  Company Number: CO-ABBVIE-16P-036-1570215-00

PATIENT
  Age: 70 Year
  Sex: Female
  Weight: 65 kg

DRUGS (1)
  1. ZEMPLAR [Suspect]
     Active Substance: PARICALCITOL
     Indication: HYPERPARATHYROIDISM SECONDARY
     Route: 048
     Dates: start: 20140815, end: 20151222

REACTIONS (4)
  - Respiratory arrest [Unknown]
  - Procedural complication [Unknown]
  - Respiratory arrest [Fatal]
  - Hip surgery [Unknown]

NARRATIVE: CASE EVENT DATE: 20160128
